FAERS Safety Report 8790512 (Version 1)
Quarter: 2012Q4

REPORT INFORMATION
  Report Type: Spontaneous
  Country: US (occurrence: None)
  Receive Date: 20120912
  Receipt Date: 20120912
  Transmission Date: 20130627
  Serious: Yes (Other)
  Sender: FDA-Public Use
  Company Number: None

PATIENT
  Age: 74 Year
  Sex: Male
  Weight: 97.98 kg

DRUGS (2)
  1. ERIVEDGE [Suspect]
     Indication: SKIN CANCER
     Dates: start: 20120623, end: 20120818
  2. ERIVEDGE [Suspect]
     Indication: PROPHYLAXIS
     Dates: start: 20120623, end: 20120818

REACTIONS (4)
  - Dysgeusia [None]
  - Ageusia [None]
  - Aphagia [None]
  - Weight decreased [None]
